FAERS Safety Report 20430741 (Version 1)
Quarter: 2022Q1

REPORT INFORMATION
  Report Type: Report from Study
  Country: FR (occurrence: FR)
  Receive Date: 20220204
  Receipt Date: 20220204
  Transmission Date: 20220423
  Serious: Yes (Hospitalization)
  Sender: FDA-Public Use
  Company Number: FR-SERVIER-S21002718

PATIENT

DRUGS (9)
  1. PEGASPARGASE [Suspect]
     Active Substance: PEGASPARGASE
     Indication: Acute lymphocytic leukaemia
     Dosage: 1725 IU, DAILY, ON D15
     Route: 042
     Dates: start: 20190610, end: 20190610
  2. PEGASPARGASE [Suspect]
     Active Substance: PEGASPARGASE
     Dosage: 862.5 IU, DAILY, ON D43
     Route: 042
     Dates: start: 20190709, end: 20190709
  3. TN UNSPECIFIED [Concomitant]
     Indication: Acute lymphocytic leukaemia
     Dosage: 1 MG ON D15, D22, D43, AND D50
     Route: 042
     Dates: start: 20190610, end: 20190716
  4. TN UNSPECIFIED [Concomitant]
     Indication: Acute lymphocytic leukaemia
     Dosage: 50 MG, ON D3 TO D6, D10 TO D13, AND D31 TO D34
     Route: 042
     Dates: start: 20190529, end: 20190707
  5. TN UNSPECIFIED [Concomitant]
     Dosage: 30 MG, ON D3 AND D31
     Route: 037
     Dates: start: 20190529, end: 20190627
  6. TN UNSPECIFIED [Concomitant]
     Indication: Acute lymphocytic leukaemia
     Dosage: 680 MG, ON D1 AND D29
     Route: 042
     Dates: start: 20190527, end: 20190625
  7. TN UNSPECIFIED [Concomitant]
     Indication: Acute lymphocytic leukaemia
     Dosage: 40 MG, ON D1 TO D14, AND D29 TO D42
     Route: 048
     Dates: start: 20190527, end: 20190708
  8. TN UNSPECIFIED [Concomitant]
     Indication: Acute lymphocytic leukaemia
     Dosage: 12 MG, ON D3 AND D31
     Route: 037
     Dates: start: 20190529, end: 20190627
  9. TN UNSPECIFIED [Concomitant]
     Indication: Acute lymphocytic leukaemia
     Dosage: 15.2 MG, ON D3 AND D31
     Route: 037
     Dates: start: 20190529, end: 20190627

REACTIONS (1)
  - Sepsis [Recovered/Resolved]

NARRATIVE: CASE EVENT DATE: 20190718
